FAERS Safety Report 6227315-9 (Version None)
Quarter: 2009Q2

REPORT INFORMATION
  Report Type: 
  Country: None (occurrence: None)
  Receive Date: 20090610
  Receipt Date: 20090526
  Transmission Date: 20091009
  Serious: Yes (Hospitalization)
  Sender: FDA-Public Use
  Company Number: IDA-00215

PATIENT
  Age: 30 Year
  Sex: Female

DRUGS (11)
  1. AVLOCARDYL (PROPRANOLOL) STRENGTH: 40MG [Suspect]
     Indication: HYPERTENSION
     Dosage: 40 MG DAILY ORAL FORMULATION: TABLET
     Route: 048
     Dates: start: 20080908, end: 20081015
  2. MOPRAL (OMEPRAZOLE) STRENGTH: 20MG [Suspect]
     Dosage: 20 MG DAILY ORAL FORMULATION: CAPSULE
     Route: 048
     Dates: start: 20080908, end: 20080930
  3. CLONAZEPAM [Suspect]
     Indication: PAIN
     Dosage: 5 GTT DAILY ORAL FORMULATION: DROPS
     Route: 048
     Dates: start: 20080908, end: 20081015
  4. IXPRIM (PARACETAMOL, TRAMADOL) [Suspect]
     Indication: PAIN
     Dosage: ORAL
     Route: 048
  5. VOLTAREN [Suspect]
     Dosage: ORAL
     Route: 048
  6. TRAMADOL HCL [Suspect]
     Indication: PAIN
     Dosage: 300 MG DAILY ORAL
     Route: 048
     Dates: start: 20080908, end: 20080916
  7. ACETAMINOPHEN [Suspect]
     Indication: PAIN
     Dosage: 4 G DAILY ORAL
     Route: 048
     Dates: start: 20080908, end: 20080930
  8. KETOPROFEN [Suspect]
     Indication: NEURALGIA
     Dosage: 2 DF DAILY ORAL
     Route: 048
     Dates: start: 20080908, end: 20080916
  9. KETOPROFEN [Suspect]
     Indication: NEURALGIA
     Dosage: 600 MG DAILY INTRAVENOUS FORMULATION: INJECTION
     Route: 042
     Dates: start: 20080908, end: 20080909
  10. MYOLASTAN (TETRAZEPAM) [Suspect]
     Dosage: 100 MG DAILY ORAL
     Route: 048
     Dates: start: 20080908, end: 20081015
  11. (CORTICOSTEROID NOS) [Concomitant]

REACTIONS (1)
  - HEPATITIS CHOLESTATIC [None]
